FAERS Safety Report 8258797-9 (Version None)
Quarter: 2012Q1

REPORT INFORMATION
  Report Type: 
  Country: None (occurrence: None)
  Receive Date: 20120322
  Receipt Date: 20120203
  Transmission Date: 20120608
  Serious: Yes (Hospitalization)
  Sender: FDA-Public Use
  Company Number: UTC-015244

PATIENT
  Age: 62 Year
  Sex: Female
  Weight: 47.27 kg

DRUGS (6)
  1. TYVASO [Suspect]
     Indication: COR PULMONALE
     Dosage: 18-54 MCG,INHALATION ; 24 MCG (6 MCG,4 IN 1 D),INHALATION
     Route: 055
     Dates: start: 20111108
  2. TYVASO [Suspect]
     Indication: COR PULMONALE
     Dosage: 18-54 MCG,INHALATION ; 24 MCG (6 MCG,4 IN 1 D),INHALATION
     Route: 055
     Dates: start: 20111108
  3. ADCIRCA [Concomitant]
  4. COUMADIN [Concomitant]
  5. DIURETICS (DIURETICS) [Concomitant]
  6. TRACLEER [Concomitant]

REACTIONS (1)
  - BRONCHOPNEUMONIA [None]
